FAERS Safety Report 5471830-2 (Version None)
Quarter: 2007Q3

REPORT INFORMATION
  Report Type: 
  Country: None (occurrence: None)
  Receive Date: 20070928
  Receipt Date: 20070710
  Transmission Date: 20080115
  Serious: No
  Sender: FDA-Public Use
  Company Number: US-BRISTOL-MYERS SQUIBB COMPANY-13815964

PATIENT
  Age: 86 Year
  Sex: Male
  Weight: 100 kg

DRUGS (4)
  1. DEFINITY [Suspect]
     Indication: ECHOCARDIOGRAM
     Route: 042
     Dates: start: 20070615
  2. ZOCOR [Concomitant]
     Route: 048
     Dates: start: 20061116
  3. FLOMAX [Concomitant]
     Route: 048
     Dates: start: 20061116
  4. WARFARIN [Concomitant]

REACTIONS (1)
  - BACK PAIN [None]
